FAERS Safety Report 17837028 (Version 1)
Quarter: 2020Q2

REPORT INFORMATION
  Report Type: Spontaneous
  Country: GB (occurrence: GB)
  Receive Date: 20200528
  Receipt Date: 20200528
  Transmission Date: 20200714
  Serious: Yes (Life-Threatening, Other)
  Sender: FDA-Public Use
  Company Number: GB-MYLANLABS-2020M1052122

PATIENT
  Age: 76 Year
  Sex: Male

DRUGS (9)
  1. NEORECORMON [Concomitant]
     Active Substance: ERYTHROPOIETIN
     Dosage: UNK
  2. WARFARIN [Suspect]
     Active Substance: WARFARIN
     Indication: GRAFT THROMBOSIS
     Dosage: 5 MILLIGRAM
     Route: 048
  3. ACETYLSALICYLIC ACID [Concomitant]
     Active Substance: ASPIRIN
     Dosage: UNK
  4. OMEPRAZOLE. [Concomitant]
     Active Substance: OMEPRAZOLE
     Dosage: UNK
  5. AMITRIPTYLINE HYDROCHLORIDE. [Concomitant]
     Active Substance: AMITRIPTYLINE HYDROCHLORIDE
     Dosage: UNK
  6. WARFARIN [Suspect]
     Active Substance: WARFARIN
     Dosage: 20 MILLIGRAM
     Route: 048
  7. ALFACALCIDOL [Concomitant]
     Active Substance: ALFACALCIDOL
     Dosage: UNK
  8. FOLIC ACID. [Concomitant]
     Active Substance: FOLIC ACID
     Dosage: UNK
  9. CALCIUM [Concomitant]
     Active Substance: CALCIUM
     Dosage: UNK

REACTIONS (2)
  - International normalised ratio increased [Recovered/Resolved]
  - Accidental overdose [Unknown]
